FAERS Safety Report 4985157-6 (Version None)
Quarter: 2006Q2

REPORT INFORMATION
  Report Type: 
  Country: None (occurrence: None)
  Receive Date: 20060427
  Receipt Date: 20051215
  Transmission Date: 20061013
  Serious: Yes (Hospitalization)
  Sender: FDA-Public Use
  Company Number: US-MERCK-0512USA02573

PATIENT
  Age: 67 Year
  Sex: Female
  Weight: 54 kg

DRUGS (7)
  1. VIOXX [Suspect]
     Indication: ANKYLOSING SPONDYLITIS
     Route: 048
     Dates: start: 20000520, end: 20040930
  2. VIOXX [Suspect]
     Indication: ARTHRITIS
     Route: 048
     Dates: start: 20000520, end: 20040930
  3. ASPIRIN [Concomitant]
     Indication: PAIN
     Route: 065
     Dates: start: 19890101
  4. PREVACID [Concomitant]
     Indication: GASTROOESOPHAGEAL REFLUX DISEASE
     Route: 065
  5. FOLIC ACID [Concomitant]
     Indication: HYPOVITAMINOSIS
     Route: 065
     Dates: start: 19990101
  6. CARDIZEM [Concomitant]
     Indication: CARDIAC DISORDER
     Route: 065
     Dates: start: 19890101, end: 20010101
  7. LIPITOR [Concomitant]
     Indication: BLOOD CHOLESTEROL INCREASED
     Route: 065
     Dates: start: 20000101

REACTIONS (12)
  - ANXIETY [None]
  - AORTIC VALVE STENOSIS [None]
  - CARDIOVASCULAR DISORDER [None]
  - DYSPNOEA [None]
  - DYSURIA [None]
  - FATIGUE [None]
  - GASTROOESOPHAGEAL REFLUX DISEASE [None]
  - HYPERTENSION [None]
  - ISCHAEMIA [None]
  - MITRAL VALVE INCOMPETENCE [None]
  - MYOCARDIAL INFARCTION [None]
  - TRICUSPID VALVE INCOMPETENCE [None]
